FAERS Safety Report 8784766 (Version 1)
Quarter: 2012Q4

REPORT INFORMATION
  Report Type: 
  Country: FI (occurrence: FI)
  Receive Date: 20120914
  Receipt Date: 20120914
  Transmission Date: 20130627
  Serious: No
  Sender: FDA-Public Use
  Company Number: FI-UCBSA-065410

PATIENT
  Age: 29 Year
  Sex: Female

DRUGS (6)
  1. CIMZIA [Suspect]
     Indication: RHEUMATOID ARTHRITIS
     Route: 058
     Dates: start: 20111026
  2. PREDNISOLON [Concomitant]
     Indication: RHEUMATOID ARTHRITIS
     Dosage: FREQUENCY : 1
  3. CORTISONE [Concomitant]
     Indication: RHEUMATOID ARTHRITIS
     Dosage: SEVERAL INJECTIONS DURING PREGNANCY
  4. KLEXANE [Concomitant]
     Indication: PROPHYLAXIS
  5. METHOTREXATE [Concomitant]
  6. METHOTREXATE [Concomitant]
     Dates: start: 20120907

REACTIONS (1)
  - Exposure during pregnancy [Recovered/Resolved]
